FAERS Safety Report 4887742-9 (Version None)
Quarter: 2006Q1

REPORT INFORMATION
  Report Type: 
  Country: None (occurrence: None)
  Receive Date: 20060118
  Receipt Date: 20060111
  Transmission Date: 20060701
  Serious: Yes (Hospitalization)
  Sender: FDA-Public Use
  Company Number: US-2005-026470

PATIENT
  Age: 56 Year
  Sex: Female
  Weight: 49 kg

DRUGS (11)
  1. CAMPATH [Suspect]
     Indication: T-CELL LYMPHOMA
     Dosage: 3/10/30, UNK, INTRAVENOUS
     Route: 042
     Dates: start: 20051113, end: 20051117
  2. CAMPATH [Suspect]
     Indication: T-CELL LYMPHOMA
     Dosage: 3/10/30, UNK, INTRAVENOUS
     Route: 042
     Dates: start: 20051121, end: 20051202
  3. . [Concomitant]
  4. NEUPOGEN [Concomitant]
  5. BENADRYL [Concomitant]
  6. TYLENOL-500 [Concomitant]
  7. BACTRIM [Concomitant]
  8. FAMVIR (PENCICLOVIR) [Concomitant]
  9. DIFLUCAN (FLUCONAZOLE) [Concomitant]
  10. FLUDARABINE PHOSPHATE [Concomitant]
  11. CYTOXAN [Concomitant]

REACTIONS (5)
  - BONE PAIN [None]
  - CHILLS [None]
  - FACIAL PALSY [None]
  - NAUSEA [None]
  - VOMITING [None]
